FAERS Safety Report 5119440-0 (Version None)
Quarter: 2006Q3

REPORT INFORMATION
  Report Type: 
  Country: None (occurrence: None)
  Receive Date: 20060929
  Receipt Date: 20060919
  Transmission Date: 20061208
  Serious: Yes (Death, Hospitalization)
  Sender: FDA-Public Use
  Company Number: 2006114469

PATIENT

DRUGS (3)
  1. CELEBREX [Suspect]
     Dates: start: 19990101
  2. BEXTRA [Suspect]
     Dates: start: 20030701
  3. VIOXX [Suspect]
     Dates: start: 20000501

REACTIONS (1)
  - DEEP VEIN THROMBOSIS [None]
